FAERS Safety Report 8350234-9 (Version None)
Quarter: 2012Q2

REPORT INFORMATION
  Report Type: 
  Country: None (occurrence: None)
  Receive Date: 20120510
  Receipt Date: 20120504
  Transmission Date: 20120825
  Serious: Yes (Hospitalization)
  Sender: FDA-Public Use
  Company Number: PHHO2011TW08564

PATIENT
  Sex: Female
  Weight: 49.1 kg

DRUGS (21)
  1. AMIODARONE HCL [Suspect]
     Indication: VENTRICULAR TACHYCARDIA
     Dosage: 100 MG, QD
     Route: 048
     Dates: start: 20100609, end: 20111221
  2. RAMIPRIL [Suspect]
     Dosage: 1.25 MG, QD
     Dates: start: 20120109, end: 20120114
  3. ALISKIREN [Suspect]
     Dosage: 150 MG, BID
     Route: 048
     Dates: start: 20111011, end: 20111213
  4. WARFARIN SODIUM [Suspect]
     Indication: THROMBOSIS PROPHYLAXIS
     Dosage: 1.25 MG, QD
     Route: 048
     Dates: start: 20110926, end: 20111221
  5. WARFARIN SODIUM [Suspect]
     Dosage: 0.25 MG, QD
     Route: 048
     Dates: start: 20120408, end: 20120502
  6. POTASSIUM CHLORIDE [Concomitant]
     Indication: HYPOKALAEMIA
     Dosage: 600 MG, QID
     Route: 048
     Dates: start: 20120108, end: 20120114
  7. ENALAPRIL MALEATE [Suspect]
     Dosage: 5 MG, BID
     Route: 048
     Dates: start: 20111011, end: 20111213
  8. PROPYL-THIOURACIL [Concomitant]
     Indication: HYPERTHYROIDISM
     Dosage: 100 MG, TID
     Route: 048
     Dates: start: 20111221
  9. ALISKIREN [Suspect]
     Indication: CARDIAC FAILURE
     Dosage: 150 MG, QD
     Route: 048
     Dates: start: 20100705, end: 20110928
  10. ENALAPRIL MALEATE [Suspect]
     Indication: CARDIAC FAILURE
     Dosage: 5 MG, UNK
     Route: 048
     Dates: start: 20100714, end: 20110928
  11. FUROSEMIDE [Suspect]
     Indication: CARDIAC FAILURE CONGESTIVE
     Dosage: 60 MG, QD
     Route: 048
     Dates: start: 20110511
  12. ZOLPIDEM [Concomitant]
     Dosage: 10 MG, QD
     Route: 048
     Dates: start: 20120220
  13. DEXTROMETHORPHAN [Suspect]
     Indication: COUGH
     Dosage: 60 MG, QD
     Route: 048
     Dates: start: 20111207, end: 20111221
  14. FUROSEMIDE [Suspect]
     Dosage: 40 MG, QD
     Route: 048
     Dates: start: 20110613
  15. ESTAZOLAM [Suspect]
     Indication: INSOMNIA
     Dosage: 2 MG, HS
     Route: 048
     Dates: start: 20110725, end: 20111221
  16. SENNOSIDE [Concomitant]
     Indication: CONSTIPATION PROPHYLAXIS
     Dosage: 40 MG, QD
     Route: 048
     Dates: start: 20110511
  17. SPIRONOLACTONE [Concomitant]
     Indication: CARDIAC FAILURE
     Dosage: 25 MG, QD
     Route: 048
     Dates: start: 20110525
  18. AMIODARONE HCL [Suspect]
     Indication: ATRIAL FIBRILLATION
  19. SENNOSIDE [Concomitant]
     Dosage: 40 MG, QHS
     Route: 048
     Dates: start: 20120103
  20. ZOLPIDEM [Concomitant]
     Indication: INSOMNIA
     Dosage: 10 MG, QD
     Route: 048
     Dates: start: 20110511
  21. CARVEDILOL [Concomitant]
     Dosage: 6.25 MG, QD
     Dates: start: 20120109, end: 20120114

REACTIONS (9)
  - HEPATITIS ACUTE [None]
  - CONDITION AGGRAVATED [None]
  - ACUTE PULMONARY OEDEMA [None]
  - RENAL IMPAIRMENT [None]
  - ATRIAL FIBRILLATION [None]
  - CARDIAC FAILURE CONGESTIVE [None]
  - CONCOMITANT DISEASE PROGRESSION [None]
  - HYPONATRAEMIA [None]
  - DISEASE PROGRESSION [None]
